FAERS Safety Report 23864122 (Version 1)
Quarter: 2024Q2

REPORT INFORMATION
  Report Type: Report from Study
  Country: US (occurrence: US)
  Receive Date: 20240516
  Receipt Date: 20240516
  Transmission Date: 20240716
  Serious: Yes (Hospitalization)
  Sender: FDA-Public Use
  Company Number: US-ELI_LILLY_AND_COMPANY-US202404006479

PATIENT
  Age: 90 Year
  Sex: Female
  Weight: 76 kg

DRUGS (1)
  1. TIRZEPATIDE [Suspect]
     Active Substance: TIRZEPATIDE
     Indication: Diabetes mellitus
     Dosage: 2.5 MG, WEEKLY (1/W)
     Route: 058
     Dates: start: 20240229

REACTIONS (5)
  - Fall [Recovering/Resolving]
  - Rib fracture [Unknown]
  - Accident [Unknown]
  - Dizziness [Unknown]
  - Decreased appetite [Unknown]
